FAERS Safety Report 4498361-0 (Version None)
Quarter: 2004Q4

REPORT INFORMATION
  Report Type: 
  Country: None (occurrence: None)
  Receive Date: 20041105
  Receipt Date: 20041101
  Transmission Date: 20050328
  Serious: Yes (Life-Threatening)
  Sender: FDA-Public Use
  Company Number: TCI2004A04033

PATIENT
  Age: 9 Decade
  Sex: Female

DRUGS (4)
  1. LANSAP 400 (LANSOPRAZOLE, CLARITHROMYCIN, AMOXICILLIN) (PREPARATION FO [Suspect]
     Indication: HELICOBACTER INFECTION
     Dosage: 1 CARD (0.5 CARD, 2 IN 1 D) PER ORAL
     Route: 048
     Dates: start: 20041007, end: 20041014
  2. PREDNISOLONE [Suspect]
  3. LASIX (LASIX) [Concomitant]
  4. WARFARIN (WARFARIN) (TABLETS) [Concomitant]

REACTIONS (6)
  - BACTERIA STOOL IDENTIFIED [None]
  - GENERAL PHYSICAL HEALTH DETERIORATION [None]
  - HAEMATOCHEZIA [None]
  - HYPOTENSION [None]
  - KLEBSIELLA SEPSIS [None]
  - SHOCK [None]
